FAERS Safety Report 14860051 (Version 8)
Quarter: 2024Q2

REPORT INFORMATION
  Report Type: Other
  Country: CA (occurrence: CA)
  Receive Date: 20180508
  Receipt Date: 20240414
  Transmission Date: 20240716
  Serious: Yes (Hospitalization, Other)
  Sender: FDA-Public Use
  Company Number: CA-002147023-PHHY2018CA002558

PATIENT
  Age: 70 Year
  Sex: Female

DRUGS (25)
  1. XOLAIR [Suspect]
     Active Substance: OMALIZUMAB
     Indication: Chronic spontaneous urticaria
     Route: 058
     Dates: start: 20180430
  2. XOLAIR [Suspect]
     Active Substance: OMALIZUMAB
     Route: 058
     Dates: start: 20180528
  3. XOLAIR [Suspect]
     Active Substance: OMALIZUMAB
     Route: 058
     Dates: start: 20180626
  4. XOLAIR [Suspect]
     Active Substance: OMALIZUMAB
     Route: 058
     Dates: start: 20180917
  5. XOLAIR [Suspect]
     Active Substance: OMALIZUMAB
     Route: 058
  6. XOLAIR [Suspect]
     Active Substance: OMALIZUMAB
     Route: 058
     Dates: start: 20190613
  7. XOLAIR [Suspect]
     Active Substance: OMALIZUMAB
     Route: 058
     Dates: start: 20200130
  8. XOLAIR [Suspect]
     Active Substance: OMALIZUMAB
     Route: 058
  9. XOLAIR [Suspect]
     Active Substance: OMALIZUMAB
     Route: 058
     Dates: start: 20180430
  10. XOLAIR [Suspect]
     Active Substance: OMALIZUMAB
     Route: 058
  11. XOLAIR [Suspect]
     Active Substance: OMALIZUMAB
     Route: 058
  12. XOLAIR [Suspect]
     Active Substance: OMALIZUMAB
     Route: 058
     Dates: start: 20210510
  13. XOLAIR [Suspect]
     Active Substance: OMALIZUMAB
     Route: 058
     Dates: start: 20220715
  14. XOLAIR [Suspect]
     Active Substance: OMALIZUMAB
     Route: 058
     Dates: start: 20230817
  15. DIOVAN [Concomitant]
     Active Substance: VALSARTAN
  16. TOPICORT [Concomitant]
     Active Substance: DESOXIMETASONE
  17. DESLORATADINE [Concomitant]
     Active Substance: DESLORATADINE
  18. BENADRYL [Concomitant]
     Active Substance: DIPHENHYDRAMINE HYDROCHLORIDE
  19. CETIRIZINE HYDROCHLORIDE [Concomitant]
     Active Substance: CETIRIZINE HYDROCHLORIDE
  20. ZANTAC [Concomitant]
     Active Substance: RANITIDINE HYDROCHLORIDE
  21. ACETAMINOPHEN [Concomitant]
     Active Substance: ACETAMINOPHEN
  22. ATARAX [Concomitant]
     Active Substance: HYDROXYZINE HYDROCHLORIDE
  23. LORATADINE [Concomitant]
     Active Substance: LORATADINE
  24. PREDNISONE [Concomitant]
     Active Substance: PREDNISONE
  25. RUPATADINE FUMARATE [Concomitant]
     Active Substance: RUPATADINE FUMARATE

REACTIONS (26)
  - Haemorrhoids [Unknown]
  - Urticaria [Recovering/Resolving]
  - Skin plaque [Not Recovered/Not Resolved]
  - Blood pressure systolic increased [Not Recovered/Not Resolved]
  - Breast cancer [Unknown]
  - Erythema [Recovered/Resolved]
  - Insomnia [Unknown]
  - Papule [Unknown]
  - Eye swelling [Unknown]
  - Lip swelling [Recovered/Resolved]
  - Insomnia [Unknown]
  - Disturbance in attention [Unknown]
  - Nervousness [Unknown]
  - Mood altered [Unknown]
  - Emotional distress [Unknown]
  - Eating disorder [Unknown]
  - Scratch [Unknown]
  - Sleep disorder [Unknown]
  - Crying [Unknown]
  - Pruritus [Recovered/Resolved]
  - Urticaria [Recovered/Resolved]
  - Dizziness [Unknown]
  - Pruritus [Recovered/Resolved]
  - Middle insomnia [Unknown]
  - Fatigue [Unknown]
  - Viral infection [Unknown]

NARRATIVE: CASE EVENT DATE: 20180430
